FAERS Safety Report 6569656-1 (Version None)
Quarter: 2010Q1

REPORT INFORMATION
  Report Type: 
  Country: None (occurrence: None)
  Receive Date: 20100204
  Receipt Date: 20100122
  Transmission Date: 20100710
  Serious: Yes (Hospitalization, Other)
  Sender: FDA-Public Use
  Company Number: PHHY2009MX53636

PATIENT
  Age: 75 Year
  Sex: Male

DRUGS (2)
  1. DIOVAN [Suspect]
     Indication: HYPERTENSION
     Dosage: 1 TABLET (160 MG) PER DAY
     Dates: start: 20020101, end: 20090822
  2. DIOVAN [Suspect]
     Dosage: 1 TABLET (80 MG) PER DAY
     Dates: start: 20091101

REACTIONS (6)
  - ABDOMINAL DISTENSION [None]
  - BILE DUCT STONE [None]
  - DIZZINESS [None]
  - EMPYEMA [None]
  - GALLBLADDER OPERATION [None]
  - GASTRITIS [None]
